FAERS Safety Report 14641007 (Version 1)
Quarter: 2018Q1

REPORT INFORMATION
  Report Type: Spontaneous
  Country: DE (occurrence: DE)
  Receive Date: 20180315
  Receipt Date: 20180315
  Transmission Date: 20180509
  Serious: Yes (Other)
  Sender: FDA-Public Use
  Company Number: DE-AMGEN-DEUSP2018033656

PATIENT
  Sex: Female

DRUGS (1)
  1. REPATHA [Suspect]
     Active Substance: EVOLOCUMAB
     Indication: CORONARY ARTERY DISEASE
     Dosage: 140 MG, UNK
     Route: 065
     Dates: start: 201802, end: 2018

REACTIONS (3)
  - Blood creatine phosphokinase increased [Unknown]
  - Depression [Unknown]
  - Myalgia [Unknown]

NARRATIVE: CASE EVENT DATE: 2018
